FAERS Safety Report 14449047 (Version 1)
Quarter: 2018Q1

REPORT INFORMATION
  Report Type: Spontaneous
  Country: US (occurrence: US)
  Receive Date: 20180126
  Receipt Date: 20180126
  Transmission Date: 20180509
  Serious: No
  Sender: FDA-Public Use
  Company Number: US-GILEAD-2018-0317879

PATIENT
  Age: 64 Year

DRUGS (1)
  1. DESCOVY [Suspect]
     Active Substance: EMTRICITABINE\TENOFOVIR ALAFENAMIDE FUMARATE
     Indication: HIV INFECTION
     Route: 065

REACTIONS (3)
  - Product use issue [Not Recovered/Not Resolved]
  - T-lymphocyte count abnormal [Not Recovered/Not Resolved]
  - Drug dispensing error [Not Recovered/Not Resolved]
